FAERS Safety Report 6874774-4 (Version None)
Quarter: 2010Q3

REPORT INFORMATION
  Report Type: 
  Country: None (occurrence: None)
  Receive Date: 20100723
  Receipt Date: 20100712
  Transmission Date: 20110219
  Serious: Yes (Death, Hospitalization)
  Sender: FDA-Public Use
  Company Number: A-US2010-37850

PATIENT
  Age: 78 Year
  Sex: Male

DRUGS (2)
  1. TRACLEER [Suspect]
     Indication: PULMONARY ARTERIAL HYPERTENSION
     Dosage: ORAL
     Route: 048
     Dates: start: 20091229, end: 20100601
  2. REVATIO [Concomitant]

REACTIONS (9)
  - ACUTE RESPIRATORY FAILURE [None]
  - AMMONIA INCREASED [None]
  - CONFUSIONAL STATE [None]
  - DIZZINESS [None]
  - LIVER FUNCTION TEST ABNORMAL [None]
  - MENTAL STATUS CHANGES [None]
  - NAUSEA [None]
  - PNEUMONIA [None]
  - SEPTIC SHOCK [None]
